FAERS Safety Report 8275337 (Version 2)
Quarter: 2012Q4

REPORT INFORMATION
  Report Type: 
  Country: ES (occurrence: ES)
  Receive Date: 20111205
  Receipt Date: 20121105
  Transmission Date: 20130627
  Serious: Yes (Death, Hospitalization, Other)
  Sender: FDA-Public Use
  Company Number: PHHO2011ES16991

PATIENT
  Age: 57 Year
  Sex: Male

DRUGS (5)
  1. AFINITOR [Suspect]
     Indication: METASTATIC RENAL CELL CARCINOMA
     Dosage: UNK
     Dates: start: 20110214, end: 20110918
  2. TINZAPARIN [Concomitant]
     Indication: DEEP VEIN THROMBOSIS
     Dosage: 20000 U, UNK
     Dates: start: 20101227, end: 2011
  3. OMEPRAZOL [Concomitant]
     Indication: DUODENAL ULCER
     Dosage: 20 mg, QD
     Route: 048
     Dates: end: 2011
  4. DOLOGEL [Concomitant]
     Indication: PAIN PROPHYLAXIS
     Dosage: UNK
     Dates: start: 20110425, end: 2011
  5. AMCHAFIBRIN [Concomitant]
     Indication: HAEMATURIA
     Dosage: BID
     Route: 048

REACTIONS (2)
  - Generalised oedema [Fatal]
  - Gastrointestinal haemorrhage [Unknown]
